FAERS Safety Report 7778145-8 (Version None)
Quarter: 2011Q3

REPORT INFORMATION
  Report Type: 
  Country: None (occurrence: None)
  Receive Date: 20110926
  Receipt Date: 20110125
  Transmission Date: 20111222
  Serious: No
  Sender: FDA-Public Use
  Company Number: US-MUTUAL PHARMACEUTICAL COMPANY, INC.-BCTM20110007

PATIENT
  Sex: Female
  Weight: 58.112 kg

DRUGS (8)
  1. BACTRIM [Suspect]
     Indication: URINARY TRACT INFECTION
     Route: 048
     Dates: start: 20101201, end: 20110101
  2. VICOPROFEN [Concomitant]
     Indication: BACK PAIN
     Route: 065
  3. XOPENEX [Concomitant]
     Indication: WHEEZING
  4. ADVAIR DISKUS 250/50 [Concomitant]
     Indication: DYSPNOEA
     Route: 065
  5. EXTAVIA [Concomitant]
     Indication: MULTIPLE SCLEROSIS
     Route: 058
     Dates: start: 20100601
  6. NEURONTIN [Concomitant]
     Indication: NEUROPATHY PERIPHERAL
     Route: 065
  7. VISTARIL 25 MG [Concomitant]
     Indication: INSOMNIA
     Route: 065
  8. ELAVIL [Concomitant]
     Indication: INSOMNIA
     Route: 065
     Dates: start: 20100601, end: 20101201

REACTIONS (4)
  - DRUG INEFFECTIVE [None]
  - ABDOMINAL PAIN UPPER [None]
  - DIARRHOEA [None]
  - FATIGUE [None]
